FAERS Safety Report 4947591-X (Version None)
Quarter: 2006Q1

REPORT INFORMATION
  Report Type: 
  Country: None (occurrence: None)
  Receive Date: 20060320
  Receipt Date: 20060308
  Transmission Date: 20060701
  Serious: Yes (Other)
  Sender: FDA-Public Use
  Company Number: PHEH2006US03070

PATIENT
  Age: 31 Year
  Sex: Female

DRUGS (1)
  1. FEMARA [Suspect]
     Indication: OVARIAN HYPERSTIMULATION SYNDROME
     Dosage: 3 TAB/DAY ON DAY 5-9
     Route: 048

REACTIONS (1)
  - OVARIAN CYST [None]
